FAERS Safety Report 16641650 (Version 2)
Quarter: 2019Q3

REPORT INFORMATION
  Report Type: Spontaneous
  Country: PT (occurrence: PT)
  Receive Date: 20190729
  Receipt Date: 20190816
  Transmission Date: 20191004
  Serious: Yes (Hospitalization, Other)
  Sender: FDA-Public Use
  Company Number: PT-AUROBINDO-AUR-APL-2019-043800

PATIENT

DRUGS (2)
  1. GLUCOSAMINE [Suspect]
     Active Substance: GLUCOSAMINE
     Indication: PAIN
     Dosage: 1500 MILLIGRAM, DAILY
     Route: 065
  2. NAPROXEN. [Suspect]
     Active Substance: NAPROXEN
     Indication: PAIN
     Dosage: 500 MILLIGRAM
     Route: 065

REACTIONS (12)
  - Red blood cell sedimentation rate [Recovered/Resolved]
  - Acute kidney injury [Recovered/Resolved]
  - Blood immunoglobulin A increased [Recovered/Resolved]
  - Normochromic normocytic anaemia [Recovered/Resolved]
  - Condition aggravated [Recovered/Resolved]
  - Blood immunoglobulin G increased [Recovered/Resolved]
  - IgA nephropathy [Recovered/Resolved]
  - Haematuria [Recovered/Resolved]
  - Proteinuria [Recovered/Resolved]
  - Nausea [Recovered/Resolved]
  - Microalbuminuria [Recovered/Resolved]
  - Tonsillitis [Recovered/Resolved]
